FAERS Safety Report 13780448 (Version 2)
Quarter: 2017Q3

REPORT INFORMATION
  Report Type: Spontaneous
  Country: US (occurrence: US)
  Receive Date: 20170724
  Receipt Date: 20170815
  Transmission Date: 20171127
  Serious: Yes (Other)
  Sender: FDA-Public Use
  Company Number: US-009507513-1707USA008651

PATIENT
  Age: 67 Year
  Sex: Male
  Weight: 85.26 kg

DRUGS (17)
  1. REPATHA [Suspect]
     Active Substance: EVOLOCUMAB
     Indication: TYPE IIA HYPERLIPIDAEMIA
     Dosage: 140 MG/ML, Q2W
     Route: 058
     Dates: start: 20170511
  2. HYZAAR [Concomitant]
     Active Substance: HYDROCHLOROTHIAZIDE\LOSARTAN POTASSIUM
  3. TOPROL XL [Suspect]
     Active Substance: METOPROLOL SUCCINATE
     Indication: HYPERTENSION
     Dosage: 50 MG, BID
     Route: 048
     Dates: start: 201306
  4. SYNTHROID [Concomitant]
     Active Substance: LEVOTHYROXINE SODIUM
  5. VITAMINS (UNSPECIFIED) [Concomitant]
     Active Substance: VITAMINS
  6. PRILOSEC [Concomitant]
     Active Substance: OMEPRAZOLE MAGNESIUM
  7. DESYREL [Concomitant]
     Active Substance: TRAZODONE HYDROCHLORIDE
  8. PEPCID [Concomitant]
     Active Substance: FAMOTIDINE
  9. SCHIFF MEGARED OMEGA-3 KRILL OIL [Concomitant]
  10. ZETIA [Concomitant]
     Active Substance: EZETIMIBE
     Dosage: UNK
     Dates: start: 20170407
  11. ASPIRIN. [Concomitant]
     Active Substance: ASPIRIN
  12. CHOLECALCIFEROL [Concomitant]
     Active Substance: CHOLECALCIFEROL
  13. FENOFIBRATE. [Concomitant]
     Active Substance: FENOFIBRATE
  14. COZAAR [Suspect]
     Active Substance: LOSARTAN POTASSIUM
     Indication: HYPERTENSION
     Dosage: 50 MG, QD
     Route: 048
     Dates: start: 201504
  15. ZYLOPRIM [Concomitant]
     Active Substance: ALLOPURINOL
     Dosage: UNK
  16. REPATHA [Suspect]
     Active Substance: EVOLOCUMAB
     Indication: HYPERCHOLESTEROLAEMIA
  17. ANTARA [Concomitant]
     Active Substance: FENOFIBRATE

REACTIONS (23)
  - Coronary angioplasty [Unknown]
  - Fatigue [Not Recovered/Not Resolved]
  - Dehydration [Unknown]
  - Carotid artery stent insertion [Unknown]
  - Carpal tunnel decompression [Unknown]
  - Catheterisation cardiac [Unknown]
  - Labile blood pressure [Unknown]
  - Blood pressure fluctuation [Unknown]
  - Skin graft [Unknown]
  - Blood triglycerides increased [Recovered/Resolved]
  - Colonoscopy [Unknown]
  - Injection site haemorrhage [Unknown]
  - Spinal operation [Unknown]
  - Hypotension [Unknown]
  - Dizziness [Unknown]
  - Carotid endarterectomy [Unknown]
  - Blood cholesterol increased [Recovered/Resolved]
  - Arteriosclerosis [Unknown]
  - High density lipoprotein increased [Not Recovered/Not Resolved]
  - Low density lipoprotein increased [Recovered/Resolved]
  - Spinal fusion surgery [Unknown]
  - Cataract operation [Unknown]
  - Transfusion [Unknown]

NARRATIVE: CASE EVENT DATE: 20151009
